FAERS Safety Report 5672891-8 (Version None)
Quarter: 2008Q1

REPORT INFORMATION
  Report Type: 
  Country: None (occurrence: None)
  Receive Date: 20080317
  Receipt Date: 20080305
  Transmission Date: 20080703
  Serious: Yes (Hospitalization, Other)
  Sender: FDA-Public Use
  Company Number: 2008005784

PATIENT
  Age: 26 Year
  Sex: Female
  Weight: 67 kg

DRUGS (2)
  1. DIPHENHYDRAMINE HCL [Suspect]
     Indication: SUICIDE ATTEMPT
     Dosage: 100 TABLETS, ORAL
     Route: 048
     Dates: start: 20080213, end: 20080213
  2. RISPERDAL [Suspect]
     Indication: HALLUCINATION
     Dosage: 2 MG TABLET 1 PER DAY (2 MG, 1 IN 1 D), ORAL
     Route: 048
     Dates: start: 20080214, end: 20080217

REACTIONS (4)
  - EXTRAPYRAMIDAL DISORDER [None]
  - INCORRECT DOSE ADMINISTERED [None]
  - NEUROLEPTIC MALIGNANT SYNDROME [None]
  - SUICIDE ATTEMPT [None]
